FAERS Safety Report 8212432-4 (Version None)
Quarter: 2012Q1

REPORT INFORMATION
  Report Type: 
  Country: None (occurrence: None)
  Receive Date: 20120315
  Receipt Date: 20120308
  Transmission Date: 20120608
  Serious: Yes (Hospitalization, Other)
  Sender: FDA-Public Use
  Company Number: US-BAYER-201026346NA

PATIENT
  Age: 29 Year
  Sex: Female
  Weight: 115.65 kg

DRUGS (20)
  1. SYNTHROID [Concomitant]
     Dosage: UNK
     Dates: start: 19980101
  2. ZYRTEC-D 12 HOUR [Concomitant]
     Dosage: UNK
     Dates: start: 20050505
  3. NORCO [Concomitant]
     Dosage: UNK
     Dates: start: 20050524
  4. LEVOTHYROXINE SODIUM [Concomitant]
     Dosage: UNK
     Dates: start: 20050501, end: 20050801
  5. PROMETHAZINE [Concomitant]
     Dosage: UNK
     Dates: start: 20050524
  6. ATIVAN [Concomitant]
  7. LORTAB [Concomitant]
  8. VALTREX [Concomitant]
  9. MEPERIDINE HCL [Concomitant]
  10. ANZEMET [Concomitant]
  11. ZOSYN [Concomitant]
     Dosage: 0.375 MG, UNK
     Route: 042
  12. ALBUTEROL [Concomitant]
  13. YASMIN [Suspect]
     Indication: VAGINAL HAEMORRHAGE
     Dosage: 2 DF, QD
     Route: 048
     Dates: start: 20050401, end: 20050701
  14. LUPRON [Concomitant]
     Dosage: PLAN: 6 MONTHS
     Route: 030
     Dates: start: 20041101, end: 20050415
  15. COLACE [Concomitant]
  16. IRON SULFATETHIAMIN COMPOUND TAB [Concomitant]
  17. PHENERGAN [Concomitant]
  18. PROTONIX [Concomitant]
  19. LEVAQUIN [Concomitant]
  20. SPIRONOLACTONE [Concomitant]
     Dosage: 25 MG, UNK
     Dates: start: 20050427

REACTIONS (8)
  - HEADACHE [None]
  - CHEST PAIN [None]
  - NAUSEA [None]
  - VOMITING [None]
  - DEEP VEIN THROMBOSIS [None]
  - PULMONARY EMBOLISM [None]
  - DYSPNOEA [None]
  - THROMBOSIS [None]
